FAERS Safety Report 4654021-4 (Version None)
Quarter: 2005Q2

REPORT INFORMATION
  Report Type: 
  Country: None (occurrence: None)
  Receive Date: 20050404
  Receipt Date: 20050113
  Transmission Date: 20051028
  Serious: No
  Sender: FDA-Public Use
  Company Number: USA050188270

PATIENT
  Age: 61 Year
  Sex: Female
  Weight: 58 kg

DRUGS (10)
  1. CYMBALTA [Suspect]
     Indication: DEPRESSION
     Dosage: 60 MG DAY
     Dates: start: 20041201
  2. ROBAXIN [Concomitant]
  3. SINEMET [Concomitant]
  4. AMBIEN [Concomitant]
  5. XANAX(ALPRAZOLAM DUM) [Concomitant]
  6. SYNTHROID [Concomitant]
  7. PREDNISONE [Concomitant]
  8. ZOCOR(SIMVASTATIN RATIOPHARM) [Concomitant]
  9. TRAZODONE [Concomitant]
  10. COUMADIN [Concomitant]

REACTIONS (8)
  - ANXIETY [None]
  - BLOOD PRESSURE INCREASED [None]
  - CHILLS [None]
  - HOT FLUSH [None]
  - INSOMNIA [None]
  - IRRITABILITY [None]
  - PRURITUS [None]
  - RASH GENERALISED [None]
